FAERS Safety Report 4538821-7 (Version None)
Quarter: 2004Q4

REPORT INFORMATION
  Report Type: 
  Country: None (occurrence: None)
  Receive Date: 20041222
  Receipt Date: 20041202
  Transmission Date: 20050328
  Serious: Yes (Hospitalization, Other)
  Sender: FDA-Public Use
  Company Number: US_0412108924

PATIENT
  Age: 65 Year
  Sex: Female

DRUGS (1)
  1. HUMULIN L [Suspect]
     Dosage: 20 U IN THE MORNING

REACTIONS (3)
  - CERVICAL CORD COMPRESSION [None]
  - MEDICATION ERROR [None]
  - NECK INJURY [None]
